FAERS Safety Report 5647060-8 (Version None)
Quarter: 2008Q1

REPORT INFORMATION
  Report Type: 
  Country: None (occurrence: None)
  Receive Date: 20080303
  Receipt Date: 20080222
  Transmission Date: 20080703
  Serious: Yes (Hospitalization, Other)
  Sender: FDA-Public Use
  Company Number: GB-JNJFOC-20080205590

PATIENT
  Sex: Male
  Weight: 84 kg

DRUGS (3)
  1. INFLIXIMAB [Suspect]
     Indication: PSORIATIC ARTHROPATHY
     Route: 042
  2. METHOTREXATE [Concomitant]
  3. PREDNISOLONE [Concomitant]

REACTIONS (2)
  - CHOLECYSTITIS INFECTIVE [None]
  - GALLBLADDER PERFORATION [None]
